FAERS Safety Report 16162554 (Version 1)
Quarter: 2019Q2

REPORT INFORMATION
  Report Type: Spontaneous
  Country: US (occurrence: US)
  Receive Date: 20190405
  Receipt Date: 20190405
  Transmission Date: 20190711
  Serious: No
  Sender: FDA-Public Use
  Company Number: US-BAYER-2019-067049

PATIENT
  Age: 48 Year
  Sex: Female
  Weight: 100 kg

DRUGS (5)
  1. CLARITIN [Suspect]
     Active Substance: LORATADINE
     Indication: NASOPHARYNGITIS
  2. CLARITIN [Suspect]
     Active Substance: LORATADINE
     Indication: SINUS HEADACHE
  3. CLARITIN [Suspect]
     Active Substance: LORATADINE
     Indication: IRRITABILITY
  4. CLARITIN [Suspect]
     Active Substance: LORATADINE
     Indication: HYPERSENSITIVITY
     Dosage: 1 DF, OM
     Route: 048
     Dates: start: 20190331, end: 20190402
  5. CLARITIN [Suspect]
     Active Substance: LORATADINE
     Indication: NASAL CONGESTION

REACTIONS (2)
  - Product use in unapproved indication [Unknown]
  - Drug ineffective [Unknown]

NARRATIVE: CASE EVENT DATE: 20190331
